FAERS Safety Report 8077234-0 (Version None)
Quarter: 2012Q1

REPORT INFORMATION
  Report Type: 
  Country: None (occurrence: None)
  Receive Date: 20120127
  Receipt Date: 20120117
  Transmission Date: 20120608
  Serious: No
  Sender: FDA-Public Use
  Company Number: DE-BAYER-2011-114817

PATIENT
  Sex: Male

DRUGS (2)
  1. OXYTOCIN [Concomitant]
  2. MIRENA [Suspect]
     Route: 064

REACTIONS (1)
  - ACOUSTIC STIMULATION TESTS ABNORMAL [None]
